FAERS Safety Report 8042642-0 (Version None)
Quarter: 2012Q1

REPORT INFORMATION
  Report Type: 
  Country: None (occurrence: None)
  Receive Date: 20120112
  Receipt Date: 20120110
  Transmission Date: 20120608
  Serious: Yes (Hospitalization, Other)
  Sender: FDA-Public Use
  Company Number: US-B.I. PHARMACEUTICALS,INC./RIDGEFIELD-2011-BP-01213BP

PATIENT
  Sex: Female
  Weight: 69 kg

DRUGS (13)
  1. CORDARONE [Concomitant]
     Indication: CARDIAC DISORDER
  2. BYSTOLIC [Concomitant]
     Indication: ATRIAL FIBRILLATION
     Dosage: 10 MG
     Route: 048
     Dates: start: 20100809
  3. MAGNESIUM [Concomitant]
     Indication: ATRIAL FIBRILLATION
  4. DILTIAZEM CD (CARDIZEM CD) [Concomitant]
     Dosage: 240 MG
     Route: 048
     Dates: start: 20110102
  5. PRADAXA [Suspect]
     Indication: ATRIAL FIBRILLATION
     Dosage: 300 MG
     Route: 048
     Dates: start: 20101223, end: 20110101
  6. DIZAREL [Concomitant]
     Indication: HYPERTENSION
  7. BUMEX [Concomitant]
  8. PRADAXA [Suspect]
     Indication: ANTICOAGULANT THERAPY
  9. BYSTOLIC [Concomitant]
     Indication: CARDIAC DISORDER
  10. COUMADIN [Concomitant]
     Dosage: 10 MG
     Route: 048
  11. CALAN [Concomitant]
     Dates: start: 20110121
  12. CORDARONE [Concomitant]
     Indication: ATRIAL FIBRILLATION
     Dosage: 800 MG
     Route: 048
     Dates: start: 20101015
  13. MAGNESIUM [Concomitant]
     Indication: CARDIAC DISORDER

REACTIONS (11)
  - PHARYNGEAL OEDEMA [None]
  - DRY SKIN [None]
  - OXYGEN SATURATION DECREASED [None]
  - PRURITUS [None]
  - EYE SWELLING [None]
  - HYPERSENSITIVITY [None]
  - GENERALISED OEDEMA [None]
  - URTICARIA [None]
  - DYSPNOEA [None]
  - INTERNATIONAL NORMALISED RATIO INCREASED [None]
  - SKIN WARM [None]
